FAERS Safety Report 9659188 (Version 2)
Quarter: 2014Q1

REPORT INFORMATION
  Report Type: Spontaneous
  Country: GB (occurrence: GB)
  Receive Date: 20131031
  Receipt Date: 20140129
  Transmission Date: 20141002
  Serious: Yes (Hospitalization, Other)
  Sender: FDA-Public Use
  Company Number: GB-009507513-1310GBR011675

PATIENT
  Age: 82 Year
  Sex: Female
  Weight: 56 kg

DRUGS (14)
  1. ALENDRONATE SODIUM [Suspect]
     Indication: OSTEOPOROSIS
     Dosage: 70 MG, 1/1 WEEKS
     Route: 048
     Dates: start: 20090930, end: 20130918
  2. ASPIRIN [Suspect]
     Indication: PROPHYLAXIS
     Dosage: 75 MG, 1/1 DAYS
     Route: 048
     Dates: start: 20010626, end: 20130918
  3. ASPIRIN [Suspect]
     Indication: TRANSIENT ISCHAEMIC ATTACK
  4. IBUPROFEN [Suspect]
     Indication: OSTEOARTHRITIS
     Dosage: 1 DF,3/ DAYS
     Route: 061
     Dates: start: 20130509
  5. AMLODIPINE [Concomitant]
  6. ATENOLOL [Concomitant]
  7. BENDROFLUMETHIAZIDE [Concomitant]
  8. CALCICHEW D3 [Concomitant]
  9. ACETAMINOPHEN (+) CODEINE PHOSPHATE [Concomitant]
  10. LAXIDO [Concomitant]
  11. OPTIVE [Concomitant]
  12. ACETAMINOPHEN [Concomitant]
  13. RAMIPRIL [Concomitant]
  14. SIMVASTATIN [Concomitant]

REACTIONS (3)
  - Gastric ulcer haemorrhage [Recovering/Resolving]
  - Melaena [Recovering/Resolving]
  - Gastrooesophageal reflux disease [Recovering/Resolving]
